FAERS Safety Report 10955137 (Version 4)
Quarter: 2015Q2

REPORT INFORMATION
  Report Type: Report from Study
  Country: FR (occurrence: FR)
  Receive Date: 20150326
  Receipt Date: 20150427
  Transmission Date: 20150821
  Serious: Yes (Other)
  Sender: FDA-Public Use
  Company Number: FR-UCBSA-117583

PATIENT
  Age: 77 Year
  Sex: Female
  Weight: 71 kg

DRUGS (22)
  1. CERTOLIZUMAB PEGOL RA [Suspect]
     Active Substance: CERTOLIZUMAB PEGOL
     Dosage: UNKNOWN DOSAGE
     Route: 058
     Dates: start: 2014, end: 2014
  2. CLIMASTON [Concomitant]
     Active Substance: ESTRADIOL\PROGESTERONE
     Indication: HORMONE REPLACEMENT THERAPY
     Dosage: 1 MG, 3X/DAY (TID)
     Route: 048
  3. TIGREAT [Concomitant]
     Indication: MIGRAINE
     Dosage: 2.5 MG
  4. UVEDOSE [Concomitant]
     Active Substance: CHOLECALCIFEROL
     Indication: VITAMIN SUPPLEMENTATION
     Dosage: 1 UNIT ,UNK
     Dates: start: 2009
  5. TUSSIDANE [Concomitant]
     Active Substance: DEXTROMETHORPHAN HYDROBROMIDE
     Indication: BRONCHITIS
     Dosage: 3 TO 4 SPOONS DAILY
     Dates: start: 201410
  6. CERTOLIZUMAB PEGOL RA [Suspect]
     Active Substance: CERTOLIZUMAB PEGOL
     Indication: RHEUMATOID ARTHRITIS
     Dosage: 200 MG, EV 2 WEEKS(QOW)
     Route: 058
     Dates: start: 20130320, end: 201401
  7. METEOSPASMYL [Concomitant]
     Active Substance: ALVERINE CITRATE\DIMETHICONE
     Indication: GASTROINTESTINAL DISORDER
     Dosage: 60 MG, 3X/DAY (TID)
     Route: 048
  8. PIASCLEDINE [Concomitant]
     Active Substance: AVOCADO OIL\SOYBEAN OIL
     Indication: ARTHRITIS
     Dosage: 300 MG, ONCE DAILY (QD)
     Route: 048
     Dates: start: 2014
  9. NOVATREX NOS [Concomitant]
     Active Substance: AZITHROMYCIN OR METHOTREXATE SODIUM
     Indication: RHEUMATOID ARTHRITIS
     Dosage: 15 MG, WEEKLY (QW)
     Route: 048
     Dates: start: 200912
  10. ROGGEL [Concomitant]
     Indication: GASTRIC DISORDER
     Dosage: 1.2 G, 3X/DAY (TID)
     Route: 048
     Dates: start: 201309
  11. FLECAINE LP [Concomitant]
     Active Substance: FLECAINIDE
     Indication: RHEUMATOID ARTHRITIS
     Dosage: 150 MG, ONCE DAILY (QD)
     Route: 048
     Dates: start: 201310
  12. AUGMENTIN [Concomitant]
     Active Substance: AMOXICILLIN\CLAVULANATE POTASSIUM
     Indication: BRONCHITIS
     Dosage: 1 G, 2X/DAY (BID) FOR 6 DAYS
     Dates: start: 201410, end: 201410
  13. IXPRIM [Concomitant]
     Active Substance: ACETAMINOPHEN\TRAMADOL HYDROCHLORIDE
     Indication: PAIN
     Dosage: 75 MG, 3X/DAY (TID)
     Route: 048
     Dates: start: 2009
  14. PARIET [Concomitant]
     Active Substance: RABEPRAZOLE SODIUM
     Indication: TYPHOID FEVER
     Dosage: 20 MG, ONCE DAILY (QD)
     Route: 048
  15. RHINOTROPHYL [Concomitant]
     Active Substance: FRAMYCETIN\MONOETHANOLAMINE
     Indication: BRONCHITIS
     Dosage: 2,NASAL ADMINISTRATIONS
     Route: 045
     Dates: start: 2014
  16. STABLON [Concomitant]
     Active Substance: TIANEPTINE
     Indication: DEPRESSION
     Dosage: 12.5 MG, 2X/DAY (BID)
     Route: 048
  17. CORTANCYL [Concomitant]
     Active Substance: PREDNISONE
     Indication: RHEUMATOID ARTHRITIS
     Dosage: 5 MG, ONCE DAILY (QD)
     Route: 048
     Dates: start: 201309
  18. SPECIAFOLDINE [Concomitant]
     Active Substance: FOLIC ACID
     Indication: FOLATE DEFICIENCY
     Dosage: 18 MG, WEEKLY (QW)
     Route: 048
     Dates: start: 2009
  19. LEVOTHYROX [Concomitant]
     Active Substance: LEVOTHYROXINE
     Indication: THYROIDECTOMY
     Dosage: 75 ?G, 3X/DAY (TID)
     Route: 048
     Dates: start: 2010
  20. CARBOSYMAG [Concomitant]
     Indication: DYSPEPSIA
     Dosage: 1 DOSE X 3 TIMES DAILY
     Route: 048
  21. SPAGULAX [Concomitant]
     Active Substance: PLANTAGO OVATA SEED
     Indication: GASTROINTESTINAL DISORDER
     Dosage: 1 BAG X 3 TIMES DAILY
     Route: 048
  22. DOLIPRANE [Concomitant]
     Active Substance: ACETAMINOPHEN
     Indication: BRONCHITIS
     Dosage: 1 G, 3 TO 4 TABLETS DAILY
     Dates: start: 201410

REACTIONS (4)
  - Influenza [Recovered/Resolved]
  - Bronchitis [Recovered/Resolved]
  - Peripheral swelling [Recovered/Resolved]
  - Squamous cell carcinoma [Recovered/Resolved]

NARRATIVE: CASE EVENT DATE: 20140101
